FAERS Safety Report 8247086-4 (Version None)
Quarter: 2012Q1

REPORT INFORMATION
  Report Type: 
  Country: None (occurrence: None)
  Receive Date: 20120330
  Receipt Date: 20120316
  Transmission Date: 20120608
  Serious: Yes (Hospitalization)
  Sender: FDA-Public Use
  Company Number: JP-ROCHE-1046045

PATIENT
  Sex: Male
  Weight: 65 kg

DRUGS (5)
  1. BISOLVON [Concomitant]
     Indication: PRODUCTIVE COUGH
     Route: 048
  2. LOXOPROFEN SODIUM [Concomitant]
     Indication: PROCEDURAL PAIN
     Route: 048
     Dates: start: 20120211
  3. MARZULENE [Concomitant]
     Route: 048
     Dates: start: 20120211
  4. UNASYN [Concomitant]
     Indication: INFECTION PROPHYLAXIS
     Route: 042
     Dates: start: 20120214, end: 20120217
  5. TAMIFLU [Suspect]
     Indication: ANTIVIRAL PROPHYLAXIS
     Route: 048
     Dates: start: 20120211, end: 20120217

REACTIONS (3)
  - PLATELET COUNT DECREASED [None]
  - THROMBOTIC THROMBOCYTOPENIC PURPURA [None]
  - URTICARIA [None]
